FAERS Safety Report 13689609 (Version 1)
Quarter: 2017Q2

REPORT INFORMATION
  Report Type: Report from Study
  Country: CA (occurrence: CA)
  Receive Date: 20170626
  Receipt Date: 20170626
  Transmission Date: 20170830
  Serious: Yes (Death, Other)
  Sender: FDA-Public Use
  Company Number: CA-ROCHE-1952842

PATIENT

DRUGS (5)
  1. RITUXIMAB [Suspect]
     Active Substance: RITUXIMAB
     Indication: LYMPHOMA
     Route: 042
  2. GEMCITABINE [Suspect]
     Active Substance: GEMCITABINE\GEMCITABINE HYDROCHLORIDE
     Indication: LYMPHOMA
     Route: 065
  3. CYTARABINE. [Suspect]
     Active Substance: CYTARABINE
     Indication: LYMPHOMA
     Route: 065
  4. CISPLATIN. [Suspect]
     Active Substance: CISPLATIN
     Indication: LYMPHOMA
     Route: 065
  5. DEXAMETHASONE. [Suspect]
     Active Substance: DEXAMETHASONE
     Indication: LYMPHOMA
     Route: 065

REACTIONS (39)
  - Thrombosis [Unknown]
  - Dyspepsia [Unknown]
  - Thrombocytopenia [Unknown]
  - Hyperhidrosis [Unknown]
  - Renal failure [Unknown]
  - Nausea [Unknown]
  - Ototoxicity [Unknown]
  - Febrile neutropenia [Unknown]
  - Insomnia [Unknown]
  - Headache [Unknown]
  - Myalgia [Unknown]
  - Dyspnoea [Unknown]
  - Fatigue [Unknown]
  - Muscular weakness [Unknown]
  - Abdominal pain [Unknown]
  - Anaemia [Unknown]
  - Oedema [Unknown]
  - Decreased appetite [Unknown]
  - Dehydration [Unknown]
  - Stomatitis [Unknown]
  - Epistaxis [Unknown]
  - Dizziness [Unknown]
  - Skin exfoliation [Unknown]
  - Pyrexia [Unknown]
  - Constipation [Unknown]
  - Vomiting [Unknown]
  - Anxiety [Unknown]
  - Cough [Unknown]
  - Rash [Unknown]
  - Infection [Unknown]
  - Hypotension [Unknown]
  - Diarrhoea [Unknown]
  - Neutropenia [Unknown]
  - Peripheral motor neuropathy [Unknown]
  - Peripheral sensory neuropathy [Unknown]
  - Arthralgia [Unknown]
  - Bone pain [Unknown]
  - Death [Fatal]
  - Depression [Unknown]
